FAERS Safety Report 7530705-5 (Version None)
Quarter: 2011Q2

REPORT INFORMATION
  Report Type: 
  Country: None (occurrence: None)
  Receive Date: 20110607
  Receipt Date: 20110607
  Transmission Date: 20111010
  Serious: Yes (Hospitalization)
  Sender: FDA-Public Use
  Company Number: JP-ABBOTT-11P-087-0726924-00

PATIENT
  Sex: Male

DRUGS (15)
  1. FOLIC ACID [Concomitant]
     Indication: PROPHYLAXIS
  2. OLOPATADINE HYDROCHLORIDE [Concomitant]
     Indication: PRODUCT USED FOR UNKNOWN INDICATION
     Dates: start: 20100202
  3. PREDNISOLONE [Suspect]
     Dates: start: 20100316, end: 20100412
  4. PREDNISOLONE [Suspect]
     Indication: RHEUMATOID ARTHRITIS
     Route: 048
     Dates: start: 20091126, end: 20091207
  5. LOXOPROFEN SODIUM HYDRATE [Concomitant]
     Indication: RHEUMATOID ARTHRITIS
     Dates: end: 20100315
  6. VALSARTAN [Concomitant]
     Indication: PRODUCT USED FOR UNKNOWN INDICATION
  7. PREDNISOLONE [Suspect]
     Dates: start: 20091208, end: 20100104
  8. PREDNISOLONE [Suspect]
     Dates: start: 20100413
  9. METHOTREXATE [Concomitant]
     Indication: RHEUMATOID ARTHRITIS
     Route: 048
  10. FEXOFENADINE HCL [Concomitant]
     Indication: PRODUCT USED FOR UNKNOWN INDICATION
     Dates: end: 20100201
  11. HUMIRA [Suspect]
     Indication: RHEUMATOID ARTHRITIS
     Route: 058
     Dates: start: 20090615
  12. PREDNISOLONE [Suspect]
     Dates: start: 20100105, end: 20100315
  13. OMEPRAZOLE [Concomitant]
     Indication: PROPHYLAXIS
  14. CLARITHROMYCIN [Concomitant]
     Indication: PRODUCT USED FOR UNKNOWN INDICATION
  15. AMLODIPINE BESYLATE [Concomitant]
     Indication: PRODUCT USED FOR UNKNOWN INDICATION

REACTIONS (1)
  - MYOCARDIAL INFARCTION [None]
